FAERS Safety Report 13341416 (Version 1)
Quarter: 2017Q1

REPORT INFORMATION
  Report Type: Spontaneous
  Country: US (occurrence: US)
  Receive Date: 20170316
  Receipt Date: 20170316
  Transmission Date: 20170428
  Serious: Yes (Other)
  Sender: FDA-Public Use
  Company Number: US-GLAXOSMITHKLINE-US2017GSK036124

PATIENT
  Sex: Female

DRUGS (3)
  1. ANORO ELLIPTA [Suspect]
     Active Substance: UMECLIDINIUM BROMIDE\VILANTEROL TRIFENATATE
     Dosage: UNK
     Dates: start: 20170309
  2. LEVOTHYROXINE. [Suspect]
     Active Substance: LEVOTHYROXINE
  3. SPIRIVA [Suspect]
     Active Substance: TIOTROPIUM BROMIDE MONOHYDRATE

REACTIONS (10)
  - Eye disorder [Unknown]
  - Glaucoma [Unknown]
  - Headache [Unknown]
  - Burning sensation [Unknown]
  - Nasal discomfort [Unknown]
  - Thyroid disorder [Unknown]
  - Drug dose omission [Unknown]
  - Eye pain [Unknown]
  - Adverse event [Unknown]
  - Urinary retention [Unknown]
